FAERS Safety Report 6028129-5 (Version None)
Quarter: 2009Q1

REPORT INFORMATION
  Report Type: 
  Country: None (occurrence: None)
  Receive Date: 20090105
  Receipt Date: 20090105
  Transmission Date: 20090719
  Serious: Yes (Other)
  Sender: FDA-Public Use
  Company Number: None

PATIENT
  Sex: Female
  Weight: 83.9154 kg

DRUGS (3)
  1. METHOTREXATE [Suspect]
     Indication: PSORIATIC ARTHROPATHY
     Dosage: ONE CC EVERY MONDAY SUB-Q
     Route: 058
     Dates: start: 20081124
  2. METHOTREXATE [Suspect]
     Indication: PSORIATIC ARTHROPATHY
     Dosage: ONE CC EVERY MONDAY SUB-Q
     Route: 058
     Dates: start: 20081215
  3. METHOTREXATE [Suspect]

REACTIONS (4)
  - INJECTION SITE ERYTHEMA [None]
  - INJECTION SITE SWELLING [None]
  - PRODUCT QUALITY ISSUE [None]
  - SKIN EXFOLIATION [None]
